FAERS Safety Report 5356880-9 (Version None)
Quarter: 2007Q2

REPORT INFORMATION
  Report Type: 
  Country: None (occurrence: None)
  Receive Date: 20070614
  Receipt Date: 20060911
  Transmission Date: 20071010
  Serious: No
  Sender: FDA-Public Use
  Company Number: US-ASTRAZENECA-2006UW17832

PATIENT
  Age: 52 Year
  Sex: Male
  Weight: 122.5 kg

DRUGS (1)
  1. ATACAND [Suspect]
     Indication: HYPERTENSION
     Route: 048
     Dates: start: 20050901

REACTIONS (5)
  - DYSURIA [None]
  - PENIS DISORDER [None]
  - PHLEBITIS SUPERFICIAL [None]
  - URETHRAL DISORDER [None]
  - VASCULITIS [None]
